FAERS Safety Report 6501940-X (Version None)
Quarter: 2009Q4

REPORT INFORMATION
  Report Type: 
  Country: None (occurrence: None)
  Receive Date: 20091216
  Receipt Date: 20091207
  Transmission Date: 20100525
  Serious: Yes (Hospitalization, Other)
  Sender: FDA-Public Use
  Company Number: GB-PFIZER INC-2009298557

PATIENT
  Age: 68 Year
  Sex: Male
  Weight: 75 kg

DRUGS (9)
  1. LIPITOR [Suspect]
     Dosage: 80 MG, 1X/DAY
  2. LIPITOR [Suspect]
     Dosage: 40 MG, 1X/DAY
  3. LIPITOR [Suspect]
     Dosage: 20 MG, 1X/DAY
  4. SIMVASTATIN [Suspect]
     Dosage: 40 MG, 1X/DAY
  5. AMLODIPINE [Concomitant]
     Dosage: 5 MG, 1X/DAY
     Route: 048
  6. ATENOLOL [Concomitant]
     Dosage: 50 MG, 1X/DAY
     Route: 048
  7. LISINOPRIL [Concomitant]
     Dosage: 20 MG, 1X/DAY
     Route: 048
  8. GLUCOPHAGE - SLOW RELEASE [Concomitant]
     Dosage: 1000 MG, 1X/DAY
     Route: 048
  9. ACETYLSALICYLIC ACID [Concomitant]
     Dosage: 75 MG, 1X/DAY
     Route: 048

REACTIONS (3)
  - ANGIOPLASTY [None]
  - CORONARY ARTERY BYPASS [None]
  - MYALGIA [None]
